FAERS Safety Report 9970021 (Version 1)
Quarter: 2014Q1

REPORT INFORMATION
  Report Type: Spontaneous
  Country: US (occurrence: None)
  Receive Date: 20140131
  Receipt Date: 20140131
  Transmission Date: 20141002
  Serious: Yes (Other)
  Sender: FDA-Public Use
  Company Number: 099937

PATIENT
  Sex: Female
  Weight: 131.5 kg

DRUGS (3)
  1. KEPPRA [Suspect]
     Indication: CONVULSION
     Dosage: (1000 MG, 500 MG 2 TABLETS)
     Dates: start: 2009
  2. SINGULAIR /01362601/ [Concomitant]
  3. PROVENTIL /00139501/ [Concomitant]

REACTIONS (3)
  - Convulsion [None]
  - Nausea [None]
  - Migraine [None]
